FAERS Safety Report 10094166 (Version 1)
Quarter: 2014Q2

REPORT INFORMATION
  Report Type: Spontaneous
  Country: US (occurrence: US)
  Receive Date: 20140422
  Receipt Date: 20140422
  Transmission Date: 20141212
  Serious: No
  Sender: FDA-Public Use
  Company Number: US-009507513-1403USA014080

PATIENT
  Age: 53 Year
  Sex: Female

DRUGS (3)
  1. PEGINTRON [Suspect]
     Indication: HEPATITIS C
     Dosage: 120 MICROGRAM, UNK
     Route: 058
     Dates: start: 20140214
  2. RIBAVIRIN [Suspect]
     Dosage: 600 MG, BID
     Route: 048
  3. SOVALDI [Concomitant]
     Dosage: 400 MG, QD
     Route: 058

REACTIONS (7)
  - Sinusitis [Recovering/Resolving]
  - Chills [Recovering/Resolving]
  - Headache [Recovering/Resolving]
  - Back pain [Recovering/Resolving]
  - Pain [Recovering/Resolving]
  - Nausea [Recovering/Resolving]
  - Dehydration [Recovering/Resolving]
